FAERS Safety Report 14350331 (Version 2)
Quarter: 2018Q3

REPORT INFORMATION
  Report Type: Spontaneous
  Country: US (occurrence: US)
  Receive Date: 20180104
  Receipt Date: 20180926
  Transmission Date: 20181010
  Serious: Yes (Hospitalization, Other)
  Sender: FDA-Public Use
  Company Number: US-DSJP-DSU-2017-138413

PATIENT

DRUGS (2)
  1. BENICAR [Suspect]
     Active Substance: OLMESARTAN MEDOXOMIL
     Indication: HYPERTENSION
     Dosage: 40 MG, QD
     Dates: start: 20060224, end: 20080328
  2. BENICAR HCT [Suspect]
     Active Substance: HYDROCHLOROTHIAZIDE\OLMESARTAN MEDOXOMIL
     Indication: HYPERTENSION
     Dosage: 40/12.5 MG,QD
     Dates: end: 20080328

REACTIONS (8)
  - Diverticulum [Not Recovered/Not Resolved]
  - Chronic kidney disease [Not Recovered/Not Resolved]
  - Acute kidney injury [Not Recovered/Not Resolved]
  - Oesophagitis ulcerative [Unknown]
  - Large intestinal ulcer [Unknown]
  - Coeliac disease [Recovering/Resolving]
  - Sprue-like enteropathy [Recovering/Resolving]
  - Diverticulitis [Unknown]

NARRATIVE: CASE EVENT DATE: 200709
